FAERS Safety Report 6588326-7 (Version None)
Quarter: 2010Q1

REPORT INFORMATION
  Report Type: 
  Country: None (occurrence: None)
  Receive Date: 20100218
  Receipt Date: 20100205
  Transmission Date: 20100710
  Serious: Yes (Hospitalization, Other)
  Sender: FDA-Public Use
  Company Number: US-ROCHE-649026

PATIENT
  Sex: Male
  Weight: 80.7 kg

DRUGS (4)
  1. ACCUTANE [Suspect]
     Dosage: STRENGTH 20 MG
     Route: 048
     Dates: start: 19990316, end: 19990413
  2. ACCUTANE [Suspect]
     Dosage: STRENGTH 40 MG
     Route: 048
     Dates: start: 19990413, end: 19990727
  3. ACCUTANE [Suspect]
     Dosage: DOSAGE REDUCED
     Route: 048
     Dates: start: 19990727, end: 19991103
  4. DOXYCYCLINE [Concomitant]
     Dates: start: 19990119

REACTIONS (11)
  - ARTHRALGIA [None]
  - BLOOD CHOLESTEROL INCREASED [None]
  - BLOOD TRIGLYCERIDES INCREASED [None]
  - COLITIS [None]
  - COLITIS ULCERATIVE [None]
  - DEPRESSION [None]
  - INFLAMMATORY BOWEL DISEASE [None]
  - LIP DRY [None]
  - MEGACOLON [None]
  - RECTAL ABSCESS [None]
  - SUICIDAL IDEATION [None]
